FAERS Safety Report 7803012-0 (Version None)
Quarter: 2011Q4

REPORT INFORMATION
  Report Type: 
  Country: None (occurrence: None)
  Receive Date: 20111007
  Receipt Date: 20110926
  Transmission Date: 20120403
  Serious: Yes (Hospitalization)
  Sender: FDA-Public Use
  Company Number: US-BAYER-2011-015881

PATIENT
  Age: 43 Year
  Sex: Female
  Weight: 117.91 kg

DRUGS (10)
  1. TRAMADOL HCL [Concomitant]
     Dosage: 1 TABLET, DAILY, EVERY 4-6 HOURS OR AS NEEDED
     Route: 048
  2. COQ10 [Concomitant]
     Dosage: 1 DAILY
     Route: 048
  3. ACIPHEX [Concomitant]
     Dosage: 1 DAILY
     Route: 048
  4. MULTI-VITAMIN [Concomitant]
     Dosage: 1 DAILY
     Route: 048
  5. YASMIN [Suspect]
     Indication: CONTRACEPTION
     Dosage: UNK
     Route: 048
     Dates: start: 20040101, end: 20081101
  6. YASMIN [Suspect]
     Indication: ACNE
  7. GLUCOSAMINE [Concomitant]
     Dosage: 1 DAILY
     Route: 048
  8. SAMET [NAFAMOSTAT MESILATE] [Concomitant]
  9. ULTRACET [Concomitant]
     Dosage: UNK
     Dates: start: 20081104
  10. VITAMIN B COMPLEX CAP [Concomitant]
     Route: 048

REACTIONS (7)
  - VENTRICULAR DYSFUNCTION [None]
  - ANXIETY [None]
  - LUNG DISORDER [None]
  - INJURY [None]
  - PULMONARY EMBOLISM [None]
  - RIGHT VENTRICULAR HYPERTROPHY [None]
  - PAIN [None]
